FAERS Safety Report 5541776-X (Version None)
Quarter: 2007Q4

REPORT INFORMATION
  Report Type: 
  Country: None (occurrence: None)
  Receive Date: 20071210
  Receipt Date: 20071130
  Transmission Date: 20080405
  Serious: Yes (Other)
  Sender: FDA-Public Use
  Company Number: A0698165A

PATIENT

DRUGS (4)
  1. LAMICTAL [Suspect]
     Indication: DRUG USE FOR UNKNOWN INDICATION
     Route: 065
  2. LITHIUM CARBONATE [Suspect]
     Indication: DRUG USE FOR UNKNOWN INDICATION
     Dosage: 900MG UNKNOWN
     Route: 065
  3. PREMARIN [Concomitant]
  4. LUNESTA [Concomitant]

REACTIONS (3)
  - DRUG LEVEL INCREASED [None]
  - HEADACHE [None]
  - THERAPEUTIC AGENT TOXICITY [None]
